FAERS Safety Report 13423200 (Version 2)
Quarter: 2017Q3

REPORT INFORMATION
  Report Type: Report from Study
  Country: DE (occurrence: DE)
  Receive Date: 20170410
  Receipt Date: 20170721
  Transmission Date: 20171127
  Serious: Yes (Life-Threatening, Hospitalization, Other)
  Sender: FDA-Public Use
  Company Number: DE-AMGEN-DEUSL2017053805

PATIENT
  Age: 56 Year
  Sex: Female
  Weight: 85 kg

DRUGS (2)
  1. KYPROLIS [Suspect]
     Active Substance: CARFILZOMIB
     Indication: OSTEOLYSIS
     Dosage: 38 MG, ON DAY 1, 2, 8
     Route: 042
     Dates: start: 20160127, end: 20160203
  2. KYPROLIS [Suspect]
     Active Substance: CARFILZOMIB
     Indication: PLASMACYTOMA

REACTIONS (1)
  - Pneumonia [Recovering/Resolving]

NARRATIVE: CASE EVENT DATE: 20160205
